FAERS Safety Report 19410597 (Version 4)
Quarter: 2022Q3

REPORT INFORMATION
  Report Type: Spontaneous
  Country: US (occurrence: US)
  Receive Date: 20210614
  Receipt Date: 20220811
  Transmission Date: 20221026
  Serious: Yes (Other)
  Sender: FDA-Public Use
  Company Number: US-MLMSERVICE-20210601-2924401-1

PATIENT
  Sex: Female

DRUGS (6)
  1. CARBOPLATIN [Suspect]
     Active Substance: CARBOPLATIN
     Indication: Ovarian cancer stage III
     Dosage: 1 CYCLICAL, (AREA UNDER THE CURVE (AUC) 4 INSTEAD OF STANDARD 5) VIA PORT
     Route: 042
  2. PACLITAXEL [Suspect]
     Active Substance: PACLITAXEL
     Indication: Ovarian cancer stage III
     Dosage: 150 MG/M2 PER CYCLICAL VIA PORT
     Route: 042
  3. BEVACIZUMAB [Suspect]
     Active Substance: BEVACIZUMAB
     Indication: Ovarian cancer stage III
     Dosage: 15 MG/KG PER CYCLICAL VIA IVIP
     Route: 042
  4. AZITHROMYCIN [Concomitant]
     Active Substance: AZITHROMYCIN
     Indication: Prophylaxis urinary tract infection
     Dosage: 250 MILLIGRAM, DAILY
     Route: 048
  5. PEGFILGRASTIM [Concomitant]
     Active Substance: PEGFILGRASTIM
     Indication: Chemotherapy side effect prophylaxis
     Dosage: 6 MG
     Route: 048
  6. BACTRIM [Concomitant]
     Active Substance: SULFAMETHOXAZOLE\TRIMETHOPRIM
     Indication: Prophylaxis urinary tract infection
     Dosage: UNK
     Route: 048

REACTIONS (18)
  - Mycobacterium avium complex infection [Unknown]
  - Urinary tract infection [Recovered/Resolved]
  - Klebsiella infection [Recovered/Resolved]
  - Urinary retention [Unknown]
  - Urinary incontinence [Unknown]
  - Hyperbilirubinaemia [Unknown]
  - Neuropathy peripheral [Unknown]
  - Hepatic enzyme increased [Unknown]
  - Anxiety [Unknown]
  - Palpitations [Unknown]
  - Dyspnoea exertional [Unknown]
  - Bone pain [Unknown]
  - Headache [Recovered/Resolved]
  - Abdominal pain [Unknown]
  - Fatigue [Unknown]
  - Diarrhoea [Unknown]
  - Nausea [Unknown]
  - Constipation [Unknown]
